FAERS Safety Report 24321830 (Version 2)
Quarter: 2024Q4

REPORT INFORMATION
  Report Type: Report from Study
  Country: CO (occurrence: CO)
  Receive Date: 20240916
  Receipt Date: 20241011
  Transmission Date: 20250114
  Serious: Yes (Hospitalization)
  Sender: RECORDATI
  Company Number: CO-RECORDATI-2024004100

PATIENT

DRUGS (12)
  1. CYSTAGON [Suspect]
     Active Substance: CYSTEAMINE BITARTRATE
     Indication: Cystinosis
     Dosage: 150 MG, Q4H
     Route: 048
     Dates: start: 20180917, end: 20240702
  2. CYSTAGON [Suspect]
     Active Substance: CYSTEAMINE BITARTRATE
     Dosage: 150 MG, Q4H
     Route: 048
     Dates: start: 20240723
  3. CYSTADROPS [Suspect]
     Active Substance: CYSTEAMINE HYDROCHLORIDE
     Indication: Cystinosis
     Dosage: 2 GTT DROPS, Q6H
     Route: 047
     Dates: start: 20181026, end: 202405
  4. CYSTADROPS [Suspect]
     Active Substance: CYSTEAMINE HYDROCHLORIDE
     Dosage: DOSE INCREASED
     Route: 047
     Dates: start: 202405
  5. FOLIC ACID [Concomitant]
     Active Substance: FOLIC ACID
     Indication: Nephropathy
     Dosage: 1 MG / DAY
  6. VITAMIN B COMPLEX [Concomitant]
     Active Substance: CYANOCOBALAMIN\DEXPANTHENOL\NIACINAMIDE\PYRIDOXINE HYDROCHLORIDE\RIBOFLAVIN 5^-PHOSPHATE SODIUM\THIA
     Indication: Vitamin supplementation
     Dosage: 1 TABLET /DAY
  7. CALCITRIOL [Concomitant]
     Active Substance: CALCITRIOL
     Indication: Vitamin supplementation
     Dosage: 0.25MG / DAY
  8. POTASSIUM CITRATE [Concomitant]
     Active Substance: POTASSIUM CITRATE
     Indication: Electrolyte substitution therapy
     Dosage: 1.080MG / DAY
  9. CALCIUM CARBONATE [Concomitant]
     Active Substance: CALCIUM CARBONATE
     Indication: Electrolyte substitution therapy
     Dosage: 4.5CC / DAY
  10. ESOMEPRAZOLE [Concomitant]
     Active Substance: ESOMEPRAZOLE
     Indication: Gastrointestinal disorder prophylaxis
     Dosage: 10 MG, Q12H
  11. SEVELAMER [Concomitant]
     Active Substance: SEVELAMER
     Indication: Nephropathy
     Dosage: 400MG/ EVERY MEAL, WITH FOOD
  12. POLYETHYLENE GLYCOL [Concomitant]
     Active Substance: POLYETHYLENE GLYCOL
     Indication: Gastrointestinal disorder
     Dosage: 1 DOSAGE FORM (SACHET), QD (AT NIGHT)

REACTIONS (7)
  - Device dislocation [Not Recovered/Not Resolved]
  - Device dislocation [Recovered/Resolved]
  - Catheter site pain [Not Recovered/Not Resolved]
  - Catheter site discharge [Not Recovered/Not Resolved]
  - Abdominal pain [Recovered/Resolved]
  - Vomiting [Recovered/Resolved]
  - Complication associated with device [Not Recovered/Not Resolved]

NARRATIVE: CASE EVENT DATE: 20240516
